FAERS Safety Report 15611083 (Version 1)
Quarter: 2018Q4

REPORT INFORMATION
  Report Type: Spontaneous
  Country: US (occurrence: US)
  Receive Date: 20181113
  Receipt Date: 20181113
  Transmission Date: 20190205
  Serious: No
  Sender: FDA-Public Use
  Company Number: US-ROCHE-2065420

PATIENT
  Age: 2 Year
  Sex: Male

DRUGS (2)
  1. TAMIFLU [Suspect]
     Active Substance: OSELTAMIVIR PHOSPHATE
     Indication: INFLUENZA
     Route: 065
  2. TAMIFLU [Suspect]
     Active Substance: OSELTAMIVIR PHOSPHATE
     Indication: SEIZURE

REACTIONS (7)
  - Tremor [Unknown]
  - Ill-defined disorder [Unknown]
  - Aggression [Unknown]
  - Muscle twitching [Unknown]
  - Hallucination [Recovered/Resolved]
  - Pain in extremity [Unknown]
  - Pain [Unknown]
